FAERS Safety Report 4583960-8 (Version None)
Quarter: 2005Q1

REPORT INFORMATION
  Report Type: 
  Country: None (occurrence: None)
  Receive Date: 20050216
  Receipt Date: 20050209
  Transmission Date: 20050727
  Serious: Yes (Hospitalization)
  Sender: FDA-Public Use
  Company Number: US-JNJFOC-20050202678

PATIENT
  Age: 40 Year
  Sex: Female
  Weight: 49.9 kg

DRUGS (5)
  1. DURAGESIC [Suspect]
     Route: 062
     Dates: start: 20050204, end: 20050205
  2. DARVOCET [Concomitant]
     Route: 049
     Dates: start: 20040101, end: 20050204
  3. DARVOCET [Concomitant]
     Route: 049
     Dates: start: 20040101, end: 20050204
  4. ULTRAM [Concomitant]
     Route: 049
     Dates: start: 20010101, end: 20050204
  5. ZANAFLEX [Concomitant]
     Dosage: AS NEEDED
     Route: 049
     Dates: start: 20010101, end: 20050204

REACTIONS (7)
  - ALANINE AMINOTRANSFERASE INCREASED [None]
  - ASPARTATE AMINOTRANSFERASE INCREASED [None]
  - BLOOD ALKALINE PHOSPHATASE INCREASED [None]
  - HEADACHE [None]
  - NAUSEA [None]
  - PRURITUS GENERALISED [None]
  - VOMITING [None]
